FAERS Safety Report 17485096 (Version 2)
Quarter: 2020Q1

REPORT INFORMATION
  Report Type: Spontaneous
  Country: AU (occurrence: AU)
  Receive Date: 20200302
  Receipt Date: 20200312
  Transmission Date: 20200409
  Serious: Yes (Hospitalization, Other)
  Sender: FDA-Public Use
  Company Number: AU-SHIRE-AU202007220

PATIENT

DRUGS (3)
  1. VYVANSE [Suspect]
     Active Substance: LISDEXAMFETAMINE DIMESYLATE
     Indication: ATTENTION DEFICIT/HYPERACTIVITY DISORDER
     Dosage: 30 MILLIGRAM
     Route: 065
  2. VENLAFAXINE [Concomitant]
     Active Substance: VENLAFAXINE HYDROCHLORIDE
     Indication: PRODUCT USED FOR UNKNOWN INDICATION
  3. DIAZEPAM. [Concomitant]
     Active Substance: DIAZEPAM
     Indication: PRODUCT USED FOR UNKNOWN INDICATION

REACTIONS (8)
  - Poisoning [Unknown]
  - Suicidal ideation [Unknown]
  - Abulia [Unknown]
  - Borderline personality disorder [Unknown]
  - Autism spectrum disorder [Unknown]
  - Wrong technique in product usage process [Unknown]
  - Depression [Unknown]
  - Malaise [Unknown]
